FAERS Safety Report 9674307 (Version 3)
Quarter: 2013Q4

REPORT INFORMATION
  Report Type: Spontaneous
  Country: US (occurrence: US)
  Receive Date: 20131107
  Receipt Date: 20131127
  Transmission Date: 20140711
  Serious: Yes (Death)
  Sender: FDA-Public Use
  Company Number: US-BIOGENIDEC-2013BI105593

PATIENT
  Age: 60 Year
  Sex: Female

DRUGS (15)
  1. AVONEX [Suspect]
     Indication: MULTIPLE SCLEROSIS
     Route: 030
  2. AVONEX [Suspect]
     Indication: MULTIPLE SCLEROSIS
     Route: 030
     Dates: start: 20030301, end: 20131028
  3. AMBIEN [Concomitant]
  4. CALCIUM +D [Concomitant]
  5. CELEXA [Concomitant]
  6. CITALOPRAM HYDROBROMIDE [Concomitant]
  7. CO Q-10 [Concomitant]
  8. FISH OIL [Concomitant]
  9. FOLIC ACID [Concomitant]
  10. GINKGO BILOBA EXTRACT [Concomitant]
  11. GLUCOSAMINE HCL [Concomitant]
  12. MILK THISTLE [Concomitant]
  13. OMEGA-3 FISH OIL [Concomitant]
  14. VITAMIN B12 [Concomitant]
  15. ZIAC [Concomitant]

REACTIONS (1)
  - Death [Fatal]
